FAERS Safety Report 5342762-5 (Version None)
Quarter: 2007Q2

REPORT INFORMATION
  Report Type: 
  Country: None (occurrence: None)
  Receive Date: 20070601
  Receipt Date: 20070524
  Transmission Date: 20071010
  Serious: Yes (Other)
  Sender: FDA-Public Use
  Company Number: FR-ABBOTT-07P-056-0369436-00

PATIENT
  Age: 28 Year
  Sex: Female

DRUGS (9)
  1. RITONAVIR SOFT GELATIN CAPSULES [Suspect]
     Indication: HIV INFECTION
     Route: 048
     Dates: start: 20060725
  2. RITONAVIR SOFT GELATIN CAPSULES [Suspect]
     Indication: ACQUIRED IMMUNODEFICIENCY SYNDROME
  3. SAQUINAVIR [Suspect]
     Indication: HIV INFECTION
     Route: 048
     Dates: start: 20060725
  4. SAQUINAVIR [Suspect]
     Indication: ACQUIRED IMMUNODEFICIENCY SYNDROME
  5. EMTRICITABINE/TENOFOVIR [Suspect]
     Indication: HIV INFECTION
     Route: 048
     Dates: start: 20060725
  6. EMTRICITABINE/TENOFOVIR [Suspect]
     Indication: ACQUIRED IMMUNODEFICIENCY SYNDROME
  7. BACTRIM [Concomitant]
     Indication: PROPHYLAXIS
     Dates: start: 20060707
  8. FLUOXETINE HYDROCHLORIDE [Concomitant]
     Indication: DEPRESSION
     Dates: start: 20060803
  9. DIAZEPAM [Concomitant]
     Indication: INSOMNIA
     Dates: start: 20060707

REACTIONS (1)
  - ABORTION INDUCED [None]
